FAERS Safety Report 6967957-6 (Version None)
Quarter: 2010Q3

REPORT INFORMATION
  Report Type: 
  Country: None (occurrence: None)
  Receive Date: 20100907
  Receipt Date: 20100827
  Transmission Date: 20110219
  Serious: Yes (Hospitalization)
  Sender: FDA-Public Use
  Company Number: A0779246A

PATIENT
  Age: 75 Year
  Sex: Female
  Weight: 82.3 kg

DRUGS (7)
  1. AVANDIA [Suspect]
     Indication: DIABETES MELLITUS
     Dosage: 8MG PER DAY
     Route: 048
     Dates: start: 20050418, end: 20070701
  2. AVANDAMET [Suspect]
     Indication: DIABETES MELLITUS
     Route: 048
     Dates: start: 20040730, end: 20050101
  3. CAPTOPRIL [Concomitant]
  4. HUMULIN R [Concomitant]
  5. METFORMIN [Concomitant]
  6. LOVASTATIN [Concomitant]
  7. ACTONEL [Concomitant]

REACTIONS (2)
  - CEREBROVASCULAR ACCIDENT [None]
  - TRANSIENT ISCHAEMIC ATTACK [None]
